FAERS Safety Report 10040788 (Version 1)
Quarter: 2014Q1

REPORT INFORMATION
  Report Type: Spontaneous
  Country: CH (occurrence: CH)
  Receive Date: 20140327
  Receipt Date: 20140327
  Transmission Date: 20141002
  Serious: Yes (Other)
  Sender: FDA-Public Use
  Company Number: PHHY2014CH034033

PATIENT
  Age: 38 Year
  Sex: Male

DRUGS (6)
  1. LOPERAMIDE [Suspect]
     Indication: DIARRHOEA
     Dosage: 20 DF, QD
  2. PARACETAMOL [Concomitant]
     Indication: SPINAL OSTEOARTHRITIS
  3. METAMIZOL [Concomitant]
     Indication: SPINAL OSTEOARTHRITIS
  4. TIZANIDINA [Concomitant]
     Indication: SPINAL OSTEOARTHRITIS
     Dosage: UNK UKN, PRN
  5. TRAMADOL [Concomitant]
     Indication: SPINAL OSTEOARTHRITIS
     Dosage: 250 G, QD
  6. BEZAFIBRATE [Concomitant]

REACTIONS (5)
  - Drug abuse [Unknown]
  - Agitation [Unknown]
  - Aggression [Unknown]
  - Anger [Unknown]
  - Intentional overdose [Unknown]
